FAERS Safety Report 4441747-0 (Version None)
Quarter: 2004Q3

REPORT INFORMATION
  Report Type: 
  Country: None (occurrence: None)
  Receive Date: 20040907
  Receipt Date: 20040827
  Transmission Date: 20050211
  Serious: Yes (Life-Threatening, Hospitalization)
  Sender: FDA-Public Use
  Company Number: US-JNJFOC-20040809916

PATIENT
  Age: 20 Year
  Sex: Male
  Weight: 70.31 kg

DRUGS (3)
  1. REMICADE [Suspect]
     Indication: CROHN'S DISEASE
     Route: 042
  2. COLAZAL [Concomitant]
     Dosage: ON SINCE AT LEAST NOV-2003
  3. 6MP [Concomitant]
     Dosage: ON SINCE AT LEAST NOV-2003

REACTIONS (2)
  - CYTOMEGALOVIRUS INFECTION [None]
  - PANCYTOPENIA [None]
